FAERS Safety Report 7551733-X (Version None)
Quarter: 2011Q2

REPORT INFORMATION
  Report Type: 
  Country: None (occurrence: None)
  Receive Date: 20110616
  Receipt Date: 20100616
  Transmission Date: 20111010
  Serious: Yes (Other)
  Sender: FDA-Public Use
  Company Number: A0866410A

PATIENT
  Sex: Male

DRUGS (1)
  1. AVANDIA [Suspect]
     Route: 048
     Dates: start: 20050101, end: 20050101

REACTIONS (3)
  - CARDIAC FAILURE CONGESTIVE [None]
  - ANGINA UNSTABLE [None]
  - CORONARY ARTERY DISEASE [None]
